FAERS Safety Report 20638630 (Version 1)
Quarter: 2022Q1

REPORT INFORMATION
  Report Type: Spontaneous
  Country: GR (occurrence: None)
  Receive Date: 20220325
  Receipt Date: 20220325
  Transmission Date: 20220423
  Serious: No
  Sender: FDA-Public Use
  Company Number: GR-ROCHE-3059034

PATIENT
  Age: 41 Year
  Sex: Female

DRUGS (7)
  1. OCREVUS [Suspect]
     Active Substance: OCRELIZUMAB
     Indication: Relapsing-remitting multiple sclerosis
     Dosage: DATE OF OCRELIZUMAB ADMINISTRATION AFTER THE DOSE OF THE VACCINE: 19/JAN/2022
     Route: 042
     Dates: start: 20220118
  2. SYMMETREL [Concomitant]
     Active Substance: AMANTADINE HYDROCHLORIDE
     Dosage: 100X2
     Dates: start: 201410
  3. REBIF [Concomitant]
     Active Substance: INTERFERON BETA-1A
     Dosage: 44X3/W
     Dates: start: 201410
  4. MEDROL [Concomitant]
     Active Substance: METHYLPREDNISOLONE
     Dosage: AT INTERVALS; 16X2
  5. SYNACTHEN [Concomitant]
     Dosage: X5
  6. PENRAZOL [Concomitant]
     Dosage: 20X2
  7. PFIZER-BIONTECH COVID-19 VACCINE [Concomitant]
     Active Substance: TOZINAMERAN
     Indication: COVID-19
     Dosage: DATES OF THE COVID-19 VACCINATION: 27/AUG/2021, 13/SEP/2021

REACTIONS (1)
  - COVID-19 [Recovered/Resolved]

NARRATIVE: CASE EVENT DATE: 20220205
